FAERS Safety Report 19478010 (Version 1)
Quarter: 2021Q2

REPORT INFORMATION
  Report Type: Spontaneous
  Country: GB (occurrence: GB)
  Receive Date: 20210630
  Receipt Date: 20210630
  Transmission Date: 20210717
  Serious: Yes (Other)
  Sender: FDA-Public Use
  Company Number: GB-PERRIGO-21GB008545

PATIENT

DRUGS (2)
  1. PARACETAMOL [Suspect]
     Active Substance: ACETAMINOPHEN
     Indication: INTENTIONAL OVERDOSE
     Dosage: 16 DF, ALL AT ONCE
     Route: 048
     Dates: start: 20210608, end: 20210608
  2. PARACETAMOL [Suspect]
     Active Substance: ACETAMINOPHEN
     Dosage: 16 DF, ALL AT ONCE
     Route: 048
     Dates: start: 20210617, end: 20210617

REACTIONS (2)
  - Intentional overdose [Recovered/Resolved]
  - Poisoning deliberate [Recovered/Resolved]
